FAERS Safety Report 21676671 (Version 1)
Quarter: 2022Q4

REPORT INFORMATION
  Report Type: Other
  Country: IT (occurrence: IT)
  Receive Date: 20221202
  Receipt Date: 20221202
  Transmission Date: 20230113
  Serious: Yes (Other)
  Sender: FDA-Public Use
  Company Number: IT-CELLTRION INC.-2022IT020083

PATIENT

DRUGS (2)
  1. TRASTUZUMAB [Suspect]
     Active Substance: TRASTUZUMAB
     Indication: Breast neoplasm
     Dosage: 480MG
     Route: 042
     Dates: start: 2021, end: 20221014
  2. DEXAMETHASONE [Concomitant]
     Active Substance: DEXAMETHASONE
     Indication: Hypercalcaemia of malignancy
     Dosage: 8MG
     Route: 042
     Dates: start: 2021, end: 20221014

REACTIONS (7)
  - Blindness [Recovering/Resolving]
  - Amnesia [Recovering/Resolving]
  - Aphthous ulcer [Recovering/Resolving]
  - Asthenia [Recovering/Resolving]
  - Erythema [Recovering/Resolving]
  - Muscle spasms [Not Recovered/Not Resolved]
  - Onychoclasis [Recovering/Resolving]

NARRATIVE: CASE EVENT DATE: 20210101
